FAERS Safety Report 12797539 (Version 1)
Quarter: 2016Q3

REPORT INFORMATION
  Report Type: Spontaneous
  Country: GB (occurrence: GB)
  Receive Date: 20160930
  Receipt Date: 20160930
  Transmission Date: 20161109
  Serious: Yes (Life-Threatening, Hospitalization)
  Sender: FDA-Public Use
  Company Number: GB-TEVA-694940ACC

PATIENT
  Age: 32 Year
  Sex: Male
  Weight: 138.5 kg

DRUGS (10)
  1. NICOTINE. [Concomitant]
     Active Substance: NICOTINE
  2. ZOLPIDEM [Concomitant]
     Active Substance: ZOLPIDEM\ZOLPIDEM TARTRATE
  3. CLOMIPRAMINE [Suspect]
     Active Substance: CLOMIPRAMINE
     Dosage: 100 MILLIGRAM DAILY;
     Route: 048
     Dates: end: 20160821
  4. MOVICOL [Concomitant]
     Active Substance: POLYETHYLENE GLYCOL 3350\POTASSIUM CHLORIDE\SODIUM BICARBONATE\SODIUM CHLORIDE
  5. HYOSCINE [Concomitant]
     Active Substance: SCOPOLAMINE
  6. NAPROXEN. [Concomitant]
     Active Substance: NAPROXEN
  7. OLANZAPINE. [Concomitant]
     Active Substance: OLANZAPINE
  8. PREGABALIN. [Concomitant]
     Active Substance: PREGABALIN
  9. ZOMORPH [Concomitant]
     Active Substance: MORPHINE SULFATE
  10. CLOZAPINE. [Suspect]
     Active Substance: CLOZAPINE
     Indication: SCHIZOPHRENIA
     Dosage: 100MG MANE, 225MG NOCTE.
     Route: 048
     Dates: start: 20160728, end: 20160821

REACTIONS (8)
  - Flat affect [Unknown]
  - Myalgia [Unknown]
  - Malaise [Unknown]
  - Pyrexia [Recovered/Resolved]
  - Muscle twitching [Unknown]
  - Neuroleptic malignant syndrome [Recovering/Resolving]
  - Tachycardia [Unknown]
  - Palpitations [Unknown]

NARRATIVE: CASE EVENT DATE: 20160820
